FAERS Safety Report 10468845 (Version 1)
Quarter: 2014Q3

REPORT INFORMATION
  Report Type: Spontaneous
  Country: US (occurrence: US)
  Receive Date: 20140923
  Receipt Date: 20140923
  Transmission Date: 20150326
  Serious: Yes (Other)
  Sender: FDA-Public Use
  Company Number: US-ACCORD-026018

PATIENT

DRUGS (1)
  1. ACCORD^S MITOMYCIN [Suspect]
     Active Substance: MITOMYCIN
     Indication: CHEMOTHERAPY
     Dates: start: 201403

REACTIONS (1)
  - Bladder cancer recurrent [Unknown]

NARRATIVE: CASE EVENT DATE: 201406
